FAERS Safety Report 8730559 (Version 4)
Quarter: 2013Q2

REPORT INFORMATION
  Report Type: Spontaneous
  Country: CN (occurrence: CN)
  Receive Date: 20120817
  Receipt Date: 20130531
  Transmission Date: 20140414
  Serious: Yes (Other)
  Sender: FDA-Public Use
  Company Number: CN-ABBOTT-12P-035-0967576-00

PATIENT
  Age: 85 Year
  Sex: Male

DRUGS (4)
  1. DEPAKINE [Suspect]
     Indication: EPILEPSY
     Route: 048
     Dates: start: 201105, end: 201111
  2. DEPAKINE [Suspect]
     Route: 048
     Dates: start: 2012
  3. DEPAKINE [Suspect]
     Route: 048
     Dates: start: 201207
  4. DEPAKINE [Suspect]
     Route: 048

REACTIONS (4)
  - Eye movement disorder [Unknown]
  - Epilepsy [Recovered/Resolved]
  - Convulsion [Unknown]
  - Loss of consciousness [Unknown]
